FAERS Safety Report 24447192 (Version 1)
Quarter: 2024Q4

REPORT INFORMATION
  Report Type: Spontaneous
  Country: US (occurrence: US)
  Receive Date: 20241016
  Receipt Date: 20241016
  Transmission Date: 20250114
  Serious: No
  Sender: SANOFI AVENTIS
  Company Number: US-SA-2024SA296751

PATIENT
  Age: 76 Year
  Sex: Female
  Weight: 95.91 kg

DRUGS (6)
  1. DUPIXENT [Suspect]
     Active Substance: DUPILUMAB
     Indication: Dermatitis atopic
     Dosage: 300 MG, QOW
     Route: 058
  2. RINVOQ [Concomitant]
     Active Substance: UPADACITINIB
     Dosage: UNK
  3. CETIRIZINE HYDROCHLORIDE [Concomitant]
     Active Substance: CETIRIZINE HYDROCHLORIDE
     Dosage: UNK
  4. ECOTRIN [Concomitant]
     Active Substance: ASPIRIN
     Dosage: UNK
  5. SUPER MULTIPLE [Concomitant]
     Dosage: UNK
  6. POTASSIUM [Concomitant]
     Active Substance: POTASSIUM
     Dosage: UNK

REACTIONS (1)
  - Shoulder fracture [Unknown]
